FAERS Safety Report 8449499 (Version 2)
Quarter: 2013Q3

REPORT INFORMATION
  Report Type: Report from Study
  Country: US (occurrence: US)
  Receive Date: 20120308
  Receipt Date: 20130826
  Transmission Date: 20140515
  Serious: No
  Sender: FDA-Public Use
  Company Number: US-ELI_LILLY_AND_COMPANY-US201203000221

PATIENT
  Age: 68 Year
  Sex: Female

DRUGS (9)
  1. TERIPARATIDE [Suspect]
     Indication: OSTEOPOROSIS
     Dosage: 20 UG, QD
     Dates: start: 20120210
  2. TERIPARATIDE [Suspect]
     Dosage: UNK, QD
     Dates: start: 20120207
  3. CENTRUM SILVER [Concomitant]
     Dosage: UNK UNK, QD
  4. MELOXICAM [Concomitant]
     Dosage: 15 MG, QD
  5. OSCAL D                            /06435501/ [Concomitant]
     Dosage: 2 DF, QD
  6. OCUVITE [Concomitant]
     Dosage: 1 DF, QD
  7. PRAVASTATIN [Concomitant]
     Dosage: 40 MG, QD
  8. ASPIRIN [Concomitant]
     Dosage: 81 MG, UNK
  9. ANALGESICS [Concomitant]
     Indication: PAIN

REACTIONS (6)
  - Somnolence [Recovered/Resolved]
  - Memory impairment [Unknown]
  - Nausea [Unknown]
  - Blood calcium increased [Unknown]
  - Bone density abnormal [Unknown]
  - Muscle spasms [Unknown]
